FAERS Safety Report 5012839-2 (Version None)
Quarter: 2006Q2

REPORT INFORMATION
  Report Type: 
  Country: None (occurrence: None)
  Receive Date: 20060530
  Receipt Date: 20060414
  Transmission Date: 20061013
  Serious: No
  Sender: FDA-Public Use
  Company Number: US-BRISTOL-MYERS SQUIBB COMPANY-13347380

PATIENT
  Age: 74 Year
  Sex: Male
  Weight: 82 kg

DRUGS (8)
  1. ERBITUX [Suspect]
     Indication: COLON CANCER METASTATIC
     Route: 042
     Dates: start: 20060405, end: 20060405
  2. CAMPTOSAR [Concomitant]
     Dates: start: 20060405, end: 20060405
  3. BENADRYL [Concomitant]
     Indication: PREMEDICATION
     Dates: start: 20060405, end: 20060405
  4. VITAMIN B COMPLEX CAP [Concomitant]
  5. VITAMIN B6 [Concomitant]
  6. LOMOTIL [Concomitant]
  7. PEPCID [Concomitant]
  8. METAMUCIL [Concomitant]

REACTIONS (1)
  - RASH [None]
